FAERS Safety Report 5134286-5 (Version None)
Quarter: 2006Q4

REPORT INFORMATION
  Report Type: 
  Country: None (occurrence: None)
  Receive Date: 20061019
  Receipt Date: 20061003
  Transmission Date: 20070319
  Serious: Yes (Hospitalization)
  Sender: FDA-Public Use
  Company Number: FR-2005-005581

PATIENT
  Age: 82 Year
  Sex: Female

DRUGS (1)
  1. SOTATOL (SOTATOL HYDROCHLORIDE) TABLET [Suspect]
     Dates: start: 20000101, end: 20041231

REACTIONS (1)
  - SCLERODERMA [None]
